FAERS Safety Report 13021794 (Version 1)
Quarter: 2016Q4

REPORT INFORMATION
  Report Type: Report from Study
  Country: US (occurrence: US)
  Receive Date: 20161213
  Receipt Date: 20161213
  Transmission Date: 20170207
  Serious: Yes (Other)
  Sender: FDA-Public Use
  Company Number: US-ROCHE-1866008

PATIENT
  Age: 69 Year
  Sex: Female
  Weight: 94.2 kg

DRUGS (15)
  1. DASATINIB [Suspect]
     Active Substance: DASATINIB
     Indication: NEOPLASM
     Route: 065
     Dates: start: 20131216
  2. BEVACIZUMAB [Suspect]
     Active Substance: BEVACIZUMAB
     Indication: NEOPLASM
     Dosage: LAST DOSE RECEIVED ON 11/AUG/2014
     Route: 042
     Dates: start: 20131120
  3. BEVACIZUMAB [Suspect]
     Active Substance: BEVACIZUMAB
     Dosage: LAST DOSE RECEIVED ON 11/AUG/2014
     Route: 042
     Dates: start: 20140113
  4. BEVACIZUMAB [Suspect]
     Active Substance: BEVACIZUMAB
     Route: 042
     Dates: start: 20140210
  5. BEVACIZUMAB [Suspect]
     Active Substance: BEVACIZUMAB
     Route: 042
     Dates: start: 20140505
  6. BEVACIZUMAB [Suspect]
     Active Substance: BEVACIZUMAB
     Route: 042
     Dates: start: 20140603
  7. BEVACIZUMAB [Suspect]
     Active Substance: BEVACIZUMAB
     Route: 042
     Dates: start: 20140407
  8. DASATINIB [Suspect]
     Active Substance: DASATINIB
     Route: 065
     Dates: start: 20140407
  9. DASATINIB [Suspect]
     Active Substance: DASATINIB
     Route: 065
     Dates: start: 20140113
  10. BEVACIZUMAB [Suspect]
     Active Substance: BEVACIZUMAB
     Dosage: LAST DOSE RECEIVED ON 11/AUG/2014
     Route: 042
     Dates: start: 20131216
  11. BEVACIZUMAB [Suspect]
     Active Substance: BEVACIZUMAB
     Route: 042
     Dates: start: 20140310
  12. DASATINIB [Suspect]
     Active Substance: DASATINIB
     Route: 065
     Dates: start: 20140310
  13. BEVACIZUMAB [Suspect]
     Active Substance: BEVACIZUMAB
     Route: 042
     Dates: start: 20140630
  14. BEVACIZUMAB [Suspect]
     Active Substance: BEVACIZUMAB
     Route: 042
     Dates: start: 20140728
  15. DASATINIB [Suspect]
     Active Substance: DASATINIB
     Route: 065
     Dates: start: 20140210

REACTIONS (2)
  - Fatigue [Unknown]
  - Hyperuricaemia [Unknown]
